FAERS Safety Report 4747886-9 (Version None)
Quarter: 2005Q3

REPORT INFORMATION
  Report Type: 
  Country: None (occurrence: None)
  Receive Date: 20050816
  Receipt Date: 20050804
  Transmission Date: 20060218
  Serious: Yes (Hospitalization)
  Sender: FDA-Public Use
  Company Number: HQWYE767508AUG05

PATIENT
  Age: 83 Year
  Sex: Female

DRUGS (1)
  1. ETODOLAC [Suspect]
     Indication: PROCEDURAL PAIN
     Dosage: 400 MG 1X PER 1 DAY ORAL
     Route: 048
     Dates: start: 20050601, end: 20050701

REACTIONS (2)
  - PLATELET COUNT DECREASED [None]
  - WHITE BLOOD CELL COUNT DECREASED [None]
